FAERS Safety Report 8984572 (Version 1)
Quarter: 2012Q4

REPORT INFORMATION
  Report Type: Spontaneous
  Country: KR (occurrence: None)
  Receive Date: 20121214
  Receipt Date: 20121214
  Transmission Date: 20130627
  Serious: Yes (Other)
  Sender: FDA-Public Use
  Company Number: KR-ACCORD-015523

PATIENT
  Age: 79 Year
  Sex: Female

DRUGS (2)
  1. DONEPEZIL [Suspect]
     Indication: DEMENTIA
  2. LEVODOPA [Concomitant]

REACTIONS (4)
  - Torticollis [None]
  - Osteopenia [None]
  - Cerebral atrophy [None]
  - Off label use [None]
